FAERS Safety Report 8165540-0 (Version None)
Quarter: 2012Q1

REPORT INFORMATION
  Report Type: 
  Country: None (occurrence: None)
  Receive Date: 20120103
  Receipt Date: 20111011
  Transmission Date: 20120608
  Serious: No
  Sender: FDA-Public Use
  Company Number: AE-2011-002238

PATIENT
  Age: 61 Year
  Sex: Male
  Weight: 113.3993 kg

DRUGS (7)
  1. PEGINTERFERON (PEGINTERFERON ALFA-2A) [Concomitant]
  2. RIBAVIRIN [Concomitant]
  3. LOSARTAN POTASSIUM [Concomitant]
  4. ASPIRIN [Concomitant]
  5. NEXIUM [Concomitant]
  6. INCIVEK [Suspect]
     Dosage: 2250 MG (750 MG,1 IN 8 HR),ORAL
     Route: 048
     Dates: start: 20111008
  7. DITIAZEM (DILTIAZEM) [Concomitant]

REACTIONS (4)
  - DYSPNOEA EXERTIONAL [None]
  - HEADACHE [None]
  - DECREASED APPETITE [None]
  - DIARRHOEA [None]
